FAERS Safety Report 4372771-4 (Version None)
Quarter: 2004Q2

REPORT INFORMATION
  Report Type: 
  Country: None (occurrence: None)
  Receive Date: 20040526
  Receipt Date: 20040513
  Transmission Date: 20050107
  Serious: Yes (Other)
  Sender: FDA-Public Use
  Company Number: 2004032509

PATIENT
  Sex: Female

DRUGS (6)
  1. ZOLOFT [Suspect]
     Indication: DEPRESSION
     Dosage: 100 MG (100 MG, 1 IN 1 D), ORAL
     Route: 048
     Dates: start: 20030101
  2. ZOLOFT [Suspect]
     Indication: OBSESSIVE-COMPULSIVE DISORDER
     Dosage: 100 MG (100 MG, 1 IN 1 D), ORAL
     Route: 048
     Dates: start: 20030101
  3. ZOLOFT [Suspect]
     Indication: PANIC ATTACK
     Dosage: 100 MG (100 MG, 1 IN 1 D), ORAL
     Route: 048
     Dates: start: 20030101
  4. DEXAMFETAMINE (DEXAMFETAMINE) [Suspect]
     Indication: ILL-DEFINED DISORDER
  5. CLONAZEPAM [Concomitant]
  6. LEVOTHYROXINE SODIUM [Concomitant]

REACTIONS (8)
  - AGITATION [None]
  - BLOOD PRESSURE INCREASED [None]
  - DIZZINESS [None]
  - DRUG INTERACTION [None]
  - FEELING DRUNK [None]
  - HEART RATE INCREASED [None]
  - HYPOTHYROIDISM [None]
  - SEROTONIN SYNDROME [None]
